FAERS Safety Report 20227345 (Version 4)
Quarter: 2022Q1

REPORT INFORMATION
  Report Type: Report from Study
  Country: IL (occurrence: IL)
  Receive Date: 20211224
  Receipt Date: 20220104
  Transmission Date: 20220424
  Serious: Yes (Death, Other)
  Sender: FDA-Public Use
  Company Number: IL-GLAXOSMITHKLINE-IL2021GSK262396

PATIENT
  Age: 37 Year
  Sex: Male
  Weight: 60 kg

DRUGS (7)
  1. BELANTAMAB MAFODOTIN [Suspect]
     Active Substance: BELANTAMAB MAFODOTIN
     Indication: Plasma cell myeloma
     Dosage: 2.5 MG/KG, CYC
     Route: 042
     Dates: start: 20200526, end: 20211116
  2. SELINEXOR [Suspect]
     Active Substance: SELINEXOR
     Indication: Plasma cell myeloma
     Dosage: 20 MG, WE
     Route: 048
     Dates: start: 20210611
  3. SELINEXOR [Suspect]
     Active Substance: SELINEXOR
     Dosage: UNK
     Dates: start: 20210620
  4. AKYNZEO [Concomitant]
     Active Substance: NETUPITANT\PALONOSETRON HYDROCHLORIDE
     Indication: Prophylaxis of nausea and vomiting
     Dosage: 0.5/30 MG, WE
     Route: 048
     Dates: start: 20210611
  5. ERYTHROPOIETIN [Concomitant]
     Active Substance: ERYTHROPOIETIN
     Indication: Chronic kidney disease
     Dosage: 5000 IU, WE
     Route: 058
     Dates: start: 20191107
  6. ERYTHROPOIETIN [Concomitant]
     Active Substance: ERYTHROPOIETIN
     Indication: Anaemia
  7. ROLAIDS [Concomitant]
     Active Substance: CALCIUM CARBONATE\MAGNESIUM HYDROXIDE
     Indication: Thrombocytopenia
     Dosage: 75 MG, BID
     Route: 048
     Dates: start: 20210919

REACTIONS (2)
  - Bacteraemia [Fatal]
  - Septic shock [Fatal]

NARRATIVE: CASE EVENT DATE: 20211219
